FAERS Safety Report 4878054-8 (Version None)
Quarter: 2006Q1

REPORT INFORMATION
  Report Type: 
  Country: None (occurrence: None)
  Receive Date: 20060110
  Receipt Date: 20051228
  Transmission Date: 20060701
  Serious: Yes (Other)
  Sender: FDA-Public Use
  Company Number: 2006000152

PATIENT
  Age: 72 Year
  Sex: Female

DRUGS (8)
  1. VFEND [Suspect]
     Indication: FUNGAL INFECTION
     Dosage: (BID)
     Dates: start: 20051001
  2. ANTIBIOTICS (ANTIBIOTICS) [Concomitant]
  3. PREDNISONE [Concomitant]
  4. ACETAMINOPHEN [Concomitant]
  5. ALL OTHER THERAPEUTIC PRODUCTS (ALL OTHER THERAPEUTIC PRODUCTS) [Concomitant]
  6. FLONASE [Concomitant]
  7. KLONOPIN [Concomitant]
  8. TESSALON [Concomitant]

REACTIONS (4)
  - ALOPECIA [None]
  - ANOREXIA [None]
  - HEPATIC ENZYME INCREASED [None]
  - WEIGHT DECREASED [None]
